FAERS Safety Report 9498080 (Version 2)
Quarter: 2014Q2

REPORT INFORMATION
  Report Type: Spontaneous
  Country: US (occurrence: US)
  Receive Date: 20130904
  Receipt Date: 20140423
  Transmission Date: 20141212
  Serious: Yes (Hospitalization, Other)
  Sender: FDA-Public Use
  Company Number: US-BAYER-2013-105678

PATIENT
  Age: 26 Year
  Sex: Female
  Weight: 58.96 kg

DRUGS (6)
  1. MIRENA [Suspect]
     Indication: CONTRACEPTION
     Dosage: 20 MCG/24HR, CONT
     Route: 015
     Dates: start: 20071127, end: 20090812
  2. MIRENA [Suspect]
     Indication: CONTRACEPTION
     Dosage: 20 MCG/24HR, CONT
     Dates: start: 20100830, end: 20130128
  3. XANAX [Concomitant]
  4. PERCOCET [Concomitant]
  5. ANAPROX [Concomitant]
  6. CYTOTEC [Concomitant]

REACTIONS (12)
  - Uterine perforation [None]
  - Genital haemorrhage [None]
  - Device use error [None]
  - Infection [None]
  - Pelvic fluid collection [None]
  - Abdominal pain lower [None]
  - Medical device pain [None]
  - Injury [None]
  - Device issue [None]
  - Off label use [None]
  - Injury [None]
  - Embedded device [None]
